FAERS Safety Report 5748486-4 (Version None)
Quarter: 2008Q2

REPORT INFORMATION
  Report Type: 
  Country: None (occurrence: None)
  Receive Date: 20080512
  Receipt Date: 20080429
  Transmission Date: 20081010
  Serious: Yes (Other)
  Sender: FDA-Public Use
  Company Number: AEUSA200800112

PATIENT
  Age: 66 Year
  Sex: Male
  Weight: 158 kg

DRUGS (7)
  1. GAMUNEX - TALBETS (10 PCT) [Suspect]
     Indication: IMMUNODEFICIENCY COMMON VARIABLE
     Dosage: 35 GM; 1X; IV
     Route: 042
     Dates: start: 20060301, end: 20080429
  2. OMEPRAZOLE [Concomitant]
  3. LOPERAMIDE HCL [Concomitant]
  4. DOVONEX [Concomitant]
  5. METAMUCIL /0091301/ [Concomitant]
  6. VITAMIN CAP [Concomitant]
  7. GLUCOSAMIDE/CHONDROITIN/01639101/ [Concomitant]

REACTIONS (4)
  - CHEST PAIN [None]
  - DYSPEPSIA [None]
  - FEELING ABNORMAL [None]
  - FORMICATION [None]
